FAERS Safety Report 9640388 (Version 1)
Quarter: 2013Q4

REPORT INFORMATION
  Report Type: Spontaneous
  Country: US (occurrence: None)
  Receive Date: 20131021
  Receipt Date: 20131021
  Transmission Date: 20140711
  Serious: Yes (Other)
  Sender: FDA-Public Use
  Company Number: IPC201310-000390

PATIENT
  Sex: Female

DRUGS (2)
  1. FUROSEMIDE (FUROSEMIDE) (FUROSEMIDE) (FUROSEMIDE) [Suspect]
     Indication: LOCAL SWELLING
     Dosage: 10 MG, TWO TABLETS, ONCE A DAY
  2. LISINOPRIL (LISINOPRIL) (LISINOPRIL) [Concomitant]

REACTIONS (5)
  - Drug ineffective [None]
  - Local swelling [None]
  - Dizziness [None]
  - Blood pressure increased [None]
  - Gait disturbance [None]
